FAERS Safety Report 16886135 (Version 2)
Quarter: 2019Q4

REPORT INFORMATION
  Report Type: Other
  Country: JP (occurrence: JP)
  Receive Date: 20191004
  Receipt Date: 20191104
  Transmission Date: 20200122
  Serious: Yes (Other)
  Sender: FDA-Public Use
  Company Number: JP-EMD SERONO-9119415

PATIENT
  Age: 35 Year
  Sex: Male
  Weight: 128 kg

DRUGS (3)
  1. SAIZEN [Suspect]
     Active Substance: SOMATROPIN
     Indication: GROWTH HORMONE DEFICIENCY
     Route: 058
  2. SAIZEN [Suspect]
     Active Substance: SOMATROPIN
     Dosage: DOSAGE INCREASED
     Route: 058
  3. SAIZEN [Suspect]
     Active Substance: SOMATROPIN
     Dosage: DOSAGE DECREASED
     Route: 058

REACTIONS (3)
  - Thirst [Unknown]
  - Hyperglycaemia [Recovering/Resolving]
  - Glycosylated haemoglobin increased [Recovering/Resolving]
